FAERS Safety Report 7782408-X (Version None)
Quarter: 2011Q3

REPORT INFORMATION
  Report Type: 
  Country: None (occurrence: None)
  Receive Date: 20110927
  Receipt Date: 20090319
  Transmission Date: 20111222
  Serious: No
  Sender: FDA-Public Use
  Company Number: PHHY2010TW17727

PATIENT
  Sex: Male

DRUGS (2)
  1. SPRYCEL [Suspect]
     Indication: CHRONIC MYELOID LEUKAEMIA
     Dosage: 100 MG, UNK
     Dates: start: 20101026
  2. TASIGNA [Suspect]
     Indication: CHRONIC MYELOID LEUKAEMIA
     Dosage: 800 MG DAILY
     Route: 048
     Dates: start: 20080911, end: 20101025

REACTIONS (21)
  - RASH [None]
  - VOCAL CORD POLYP [None]
  - DEPRESSED MOOD [None]
  - TINEA PEDIS [None]
  - CONSTIPATION [None]
  - JAUNDICE [None]
  - DIZZINESS [None]
  - ACNE [None]
  - MALAISE [None]
  - BLOOD BILIRUBIN INCREASED [None]
  - BLOOD GLUCOSE INCREASED [None]
  - MYALGIA [None]
  - DRY SKIN [None]
  - VOMITING [None]
  - SKIN SWELLING [None]
  - DIARRHOEA [None]
  - MICTURITION URGENCY [None]
  - SLEEP DISORDER [None]
  - BONE PAIN [None]
  - DRUG EFFECT DECREASED [None]
  - ONYCHOMYCOSIS [None]
